FAERS Safety Report 19010051 (Version 1)
Quarter: 2021Q1

REPORT INFORMATION
  Report Type: Spontaneous
  Country: GR (occurrence: GR)
  Receive Date: 20210315
  Receipt Date: 20210315
  Transmission Date: 20210420
  Serious: Yes (Other)
  Sender: FDA-Public Use
  Company Number: GR-FRESENIUS KABI-FK202102449

PATIENT
  Age: 59 Year
  Sex: Female

DRUGS (2)
  1. LEVETIRACETAM. [Suspect]
     Active Substance: LEVETIRACETAM
     Indication: PARTIAL SEIZURES
     Route: 065
  2. VALPROATE [Suspect]
     Active Substance: VALPROIC ACID
     Indication: PARTIAL SEIZURES
     Route: 042

REACTIONS (4)
  - Toxicity to various agents [Recovered/Resolved]
  - Stupor [Recovered/Resolved]
  - Parkinsonism [Recovered/Resolved]
  - Myelosuppression [Recovered/Resolved]
